FAERS Safety Report 17787552 (Version 1)
Quarter: 2020Q2

REPORT INFORMATION
  Report Type: Spontaneous
  Country: CH (occurrence: CH)
  Receive Date: 20200514
  Receipt Date: 20200514
  Transmission Date: 20200714
  Serious: Yes (Death)
  Sender: FDA-Public Use
  Company Number: CH-BAYER-2020-083830

PATIENT
  Age: 77 Year
  Sex: Female

DRUGS (2)
  1. STIVARGA [Suspect]
     Active Substance: REGORAFENIB
     Indication: METASTASIS
     Dosage: 40 MG 84 TABLETS LAST DELIVERY
     Dates: start: 20150727
  2. STIVARGA [Suspect]
     Active Substance: REGORAFENIB
     Indication: GASTROINTESTINAL STROMAL TUMOUR
     Dosage: 40 MG 84 TABLETS FIRST DELIVERY
     Dates: start: 20131112

REACTIONS (1)
  - Death [Fatal]
